FAERS Safety Report 23693795 (Version 1)
Quarter: 2024Q2

REPORT INFORMATION
  Report Type: Spontaneous
  Country: US (occurrence: US)
  Receive Date: 20240401
  Receipt Date: 20240401
  Transmission Date: 20240716
  Serious: Yes (Other)
  Sender: FDA-Public Use
  Company Number: US-ABBVIE-5696749

PATIENT
  Age: 35 Year
  Sex: Female
  Weight: 92 kg

DRUGS (3)
  1. LILETTA [Suspect]
     Active Substance: LEVONORGESTREL
     Indication: Product used for unknown indication
     Dosage: TIME INTERVAL: AS NECESSARY
     Route: 015
     Dates: start: 20240229, end: 20240229
  2. DEPO-PROVERA [Concomitant]
     Active Substance: MEDROXYPROGESTERONE ACETATE
     Indication: Product used for unknown indication
     Dosage: FORM STRENGTH: 150 MG/ML?INJECT 1 ML EVERY 3 MONTHS
     Route: 030
     Dates: start: 20240304, end: 20240304
  3. MEDROXYPROGESTERONE [Concomitant]
     Active Substance: MEDROXYPROGESTERONE
     Indication: Product used for unknown indication
     Dosage: FORM STRENGTH: 150 MG/ML?FORMULATION: SUSPENSION?FREQUENCY: EVERY 3 MONTHS
     Dates: start: 20240229, end: 20240229

REACTIONS (2)
  - Device placement issue [Unknown]
  - Embedded device [Unknown]

NARRATIVE: CASE EVENT DATE: 20240229
